FAERS Safety Report 20652824 (Version 1)
Quarter: 2022Q1

REPORT INFORMATION
  Report Type: Spontaneous
  Country: US (occurrence: US)
  Receive Date: 20220330
  Receipt Date: 20220330
  Transmission Date: 20220423
  Serious: Yes (Other)
  Sender: FDA-Public Use
  Company Number: ALC2022US001579

PATIENT
  Sex: Female

DRUGS (1)
  1. LUTEIN\MINERALS\VITAMINS\ZINC [Suspect]
     Active Substance: LUTEIN\MINERALS\VITAMINS\ZINC
     Indication: Product used for unknown indication
     Dosage: UNK
     Route: 048

REACTIONS (3)
  - Choking [Recovered/Resolved]
  - Product use complaint [Recovered/Resolved]
  - Product size issue [Unknown]

NARRATIVE: CASE EVENT DATE: 20220321
